FAERS Safety Report 8603379-X (Version None)
Quarter: 2012Q3

REPORT INFORMATION
  Report Type: 
  Country: None (occurrence: None)
  Receive Date: 20120817
  Receipt Date: 20120601
  Transmission Date: 20120928
  Serious: Yes (Congenital Anomaly)
  Sender: FDA-Public Use
  Company Number: US-TEVA-2011003682

PATIENT
  Sex: Female

DRUGS (1)
  1. PROVIGIL [Suspect]
     Route: 064

REACTIONS (1)
  - TALIPES [None]
